FAERS Safety Report 17067613 (Version 1)
Quarter: 2019Q4

REPORT INFORMATION
  Report Type: Spontaneous
  Country: CN (occurrence: CN)
  Receive Date: 20191122
  Receipt Date: 20191122
  Transmission Date: 20200122
  Serious: Yes (Hospitalization)
  Sender: FDA-Public Use
  Company Number: CN-PFIZER INC-2019501157

PATIENT
  Age: 5 Month
  Sex: Male
  Weight: 8.5 kg

DRUGS (1)
  1. ZITHROMAX [Suspect]
     Active Substance: AZITHROMYCIN DIHYDRATE
     Indication: INFECTION
     Dosage: 0.08 G, 1X/DAY
     Route: 048
     Dates: start: 20191111, end: 20191113

REACTIONS (3)
  - Faeces discoloured [Recovering/Resolving]
  - Urine output decreased [Recovering/Resolving]
  - Diarrhoea [Recovering/Resolving]

NARRATIVE: CASE EVENT DATE: 20191113
